FAERS Safety Report 24873720 (Version 1)
Quarter: 2025Q1

REPORT INFORMATION
  Report Type: Spontaneous
  Country: US (occurrence: None)
  Receive Date: 20250121
  Receipt Date: 20250121
  Transmission Date: 20250409
  Serious: Yes (Other)
  Sender: FDA-CTU
  Company Number: None

PATIENT
  Age: 27 Year
  Sex: Male
  Weight: 74.47 kg

DRUGS (4)
  1. CABOTEGRAVIR [Suspect]
     Active Substance: CABOTEGRAVIR
     Indication: Prophylaxis against HIV infection
     Dosage: OTHER FREQUENCY : EVERY OTHER MONTH;?
     Route: 030
     Dates: start: 20240415
  2. aripiprazole 10mg at bedtime [Concomitant]
     Dates: start: 20230722
  3. Ozempic 0.25mg SQ weekly [Concomitant]
     Dates: start: 20240504
  4. olmesartan-HCTZ 40mg/12.5mg po qd [Concomitant]
     Dates: start: 20240114

REACTIONS (2)
  - Haematoma [None]
  - Abscess [None]

NARRATIVE: CASE EVENT DATE: 20250118
